FAERS Safety Report 13370964 (Version 2)
Quarter: 2017Q4

REPORT INFORMATION
  Report Type: Spontaneous
  Country: DE (occurrence: DE)
  Receive Date: 20170324
  Receipt Date: 20171005
  Transmission Date: 20180320
  Serious: Yes (Death, Hospitalization)
  Sender: FDA-Public Use
  Company Number: DE-JNJFOC-20170323540

PATIENT
  Age: 83 Year
  Sex: Female
  Weight: 75 kg

DRUGS (2)
  1. RIVAROXABAN [Suspect]
     Active Substance: RIVAROXABAN
     Indication: PRODUCT USED FOR UNKNOWN INDICATION
     Route: 048
     Dates: start: 201308
  2. RIOCIGUAT [Suspect]
     Active Substance: RIOCIGUAT
     Indication: PULMONARY HYPERTENSION
     Route: 065
     Dates: start: 20141119

REACTIONS (4)
  - Pulmonary embolism [Recovered/Resolved]
  - Venous thrombosis limb [Recovered/Resolved]
  - Femur fracture [Recovered/Resolved]
  - Cerebral haemorrhage [Fatal]

NARRATIVE: CASE EVENT DATE: 20170222
